FAERS Safety Report 7488535-9 (Version None)
Quarter: 2011Q2

REPORT INFORMATION
  Report Type: 
  Country: None (occurrence: None)
  Receive Date: 20110518
  Receipt Date: 20110503
  Transmission Date: 20111010
  Serious: Yes (Other)
  Sender: FDA-Public Use
  Company Number: CA-JNJFOC-20110410962

PATIENT
  Age: 23 Month
  Sex: Female
  Weight: 13.61 kg

DRUGS (2)
  1. CHILDREN'S BENADRYL ALLERGY [Suspect]
     Indication: URTICARIA
     Dosage: 1/2 TSP (^WITH CHILD TYL. MEASURING CUP^), 4X A DAY, AS DIRECTED.
     Route: 048
     Dates: start: 20110401
  2. CHILDREN'S BENADRYL ALLERGY [Suspect]
     Indication: HYPERSENSITIVITY
     Dosage: 1/2 TSP (^WITH CHILD TYL. MEASURING CUP^), 4X A DAY, AS DIRECTED.
     Route: 048
     Dates: start: 20110401

REACTIONS (7)
  - ABNORMAL BEHAVIOUR [None]
  - CONFUSIONAL STATE [None]
  - DISORIENTATION [None]
  - WRONG DRUG ADMINISTERED [None]
  - INCORRECT DOSE ADMINISTERED [None]
  - OFF LABEL USE [None]
  - PRODUCT QUALITY ISSUE [None]
